FAERS Safety Report 15854803 (Version 2)
Quarter: 2019Q2

REPORT INFORMATION
  Report Type: Spontaneous
  Country: US (occurrence: US)
  Receive Date: 20190122
  Receipt Date: 20190618
  Transmission Date: 20190711
  Serious: No
  Sender: FDA-Public Use
  Company Number: US-MYLANLABS-2019M1001707

PATIENT
  Sex: Female
  Weight: 59 kg

DRUGS (1)
  1. AMLODIPINE BESYLATE AND VALSARTAN [Suspect]
     Active Substance: AMLODIPINE BESYLATE\VALSARTAN
     Indication: HYPERTENSION
     Dosage: 20
     Route: 065

REACTIONS (4)
  - Nausea [Unknown]
  - Palpitations [Unknown]
  - Feeling abnormal [Unknown]
  - Dizziness [Unknown]
